FAERS Safety Report 9140591 (Version 1)
Quarter: 2013Q1

REPORT INFORMATION
  Report Type: Spontaneous
  Country: US (occurrence: US)
  Receive Date: 20130305
  Receipt Date: 20130305
  Transmission Date: 20140127
  Serious: Yes (Hospitalization)
  Sender: FDA-Public Use
  Company Number: US-GLAXOSMITHKLINE-A0770965A

PATIENT
  Age: 32 Year
  Sex: Female

DRUGS (1)
  1. AVANDIA [Suspect]
     Indication: TYPE 2 DIABETES MELLITUS
     Dosage: 8MG TWICE PER DAY
     Route: 048
     Dates: start: 1999, end: 2003

REACTIONS (4)
  - Cervical myelopathy [Not Recovered/Not Resolved]
  - Cerebrovascular accident [Unknown]
  - Myelitis transverse [Unknown]
  - Acute coronary syndrome [Unknown]
